FAERS Safety Report 5143806-6 (Version None)
Quarter: 2006Q4

REPORT INFORMATION
  Report Type: 
  Country: None (occurrence: None)
  Receive Date: 20061027
  Receipt Date: 20061017
  Transmission Date: 20070319
  Serious: Yes (Hospitalization)
  Sender: FDA-Public Use
  Company Number: 2006128562

PATIENT

DRUGS (2)
  1. ACETAMINOPHEN [Suspect]
     Dosage: UNSPECIFEID SINGLE-DOSE, ORAL
     Route: 048
  2. ETHANOL (ETHYL ALCOHOL) [Suspect]

REACTIONS (6)
  - BLOOD CREATININE INCREASED [None]
  - DRUG LEVEL INCREASED [None]
  - DRUG TOXICITY [None]
  - HEPATIC ENCEPHALOPATHY [None]
  - HEPATOTOXICITY [None]
  - PROTHROMBIN TIME RATIO DECREASED [None]
